FAERS Safety Report 8766757 (Version 1)
Quarter: 2012Q4

REPORT INFORMATION
  Report Type: Report from Study
  Country: DE (occurrence: DE)
  Receive Date: 20120904
  Receipt Date: 20120904
  Transmission Date: 20130627
  Serious: Yes (Death)
  Sender: FDA-Public Use
  Company Number: DE-CELGENEUS-062-21880-12072765

PATIENT
  Age: 48 Year
  Sex: Female

DRUGS (2)
  1. REVLIMID [Suspect]
     Indication: MDS
     Route: 048
  2. REVLIMID [Suspect]
     Indication: ACUTE MYELOID LEUKEMIA

REACTIONS (1)
  - Death [Fatal]
